FAERS Safety Report 6668561-X (Version None)
Quarter: 2010Q2

REPORT INFORMATION
  Report Type: 
  Country: None (occurrence: None)
  Receive Date: 20100406
  Receipt Date: 20100330
  Transmission Date: 20101027
  Serious: Yes (Death)
  Sender: FDA-Public Use
  Company Number: GB-ALEXION-A201000179

PATIENT

DRUGS (2)
  1. SOLIRIS [Suspect]
     Indication: PAROXYSMAL NOCTURNAL HAEMOGLOBINURIA
     Dosage: 600 MG, Q7D
     Route: 042
     Dates: start: 20090813
  2. SOLIRIS [Suspect]
     Dosage: 900 MG, Q14D
     Route: 042
     Dates: start: 20090924

REACTIONS (1)
  - THROMBOSIS [None]
